FAERS Safety Report 7021189-4 (Version None)
Quarter: 2010Q3

REPORT INFORMATION
  Report Type: 
  Country: None (occurrence: None)
  Receive Date: 20100929
  Receipt Date: 20100922
  Transmission Date: 20110219
  Serious: Yes (Other)
  Sender: FDA-Public Use
  Company Number: CHPA2010FR13373

PATIENT
  Age: 65 Year
  Sex: Male

DRUGS (1)
  1. SCOPOLAMINE [Suspect]
     Indication: MOTION SICKNESS
     Dosage: UNK, UNK
     Route: 062
     Dates: start: 20090701, end: 20091001

REACTIONS (3)
  - LACERATION [None]
  - LASER THERAPY [None]
  - VITREOUS DETACHMENT [None]
